FAERS Safety Report 24164910 (Version 1)
Quarter: 2024Q3

REPORT INFORMATION
  Report Type: Spontaneous
  Country: CN (occurrence: CN)
  Receive Date: 20240801
  Receipt Date: 20240801
  Transmission Date: 20241017
  Serious: Yes (Hospitalization)
  Sender: BEIGENE
  Company Number: CN-BEIGENE-BGN-2024-011507

PATIENT

DRUGS (5)
  1. TISLELIZUMAB [Suspect]
     Active Substance: TISLELIZUMAB
     Indication: Ovarian cancer
     Dosage: 200 MILLIGRAM
     Route: 041
     Dates: start: 20240618
  2. CISPLATIN [Suspect]
     Active Substance: CISPLATIN
     Indication: Ovarian cancer
     Dosage: 90 MILLIGRAM
     Route: 041
     Dates: start: 20240618
  3. FLUZOPARIB [Suspect]
     Active Substance: FLUZOPARIB
     Indication: Ovarian cancer
     Dosage: 150 MILLIGRAM, BID
     Route: 048
     Dates: start: 20240618
  4. PACLITAXEL [Suspect]
     Active Substance: PACLITAXEL
     Indication: Ovarian cancer
     Dosage: 180 MILLIGRAM
     Route: 041
     Dates: start: 20240618
  5. LENVATINIB MESYLATE [Suspect]
     Active Substance: LENVATINIB MESYLATE
     Indication: Ovarian cancer
     Dosage: 8 MILLIGRAM, BID
     Route: 048
     Dates: start: 20240618

REACTIONS (1)
  - Myelosuppression [Recovering/Resolving]

NARRATIVE: CASE EVENT DATE: 20240708
